FAERS Safety Report 6856443-X (Version None)
Quarter: 2010Q3

REPORT INFORMATION
  Report Type: 
  Country: None (occurrence: None)
  Receive Date: 20100719
  Receipt Date: 20100705
  Transmission Date: 20110219
  Serious: Yes (Hospitalization, Other)
  Sender: FDA-Public Use
  Company Number: RU-GENZYME-RENA-1000717

PATIENT
  Sex: Male
  Weight: 7.8 kg

DRUGS (7)
  1. RENAGEL [Suspect]
     Indication: HYPERPHOSPHATAEMIA
     Dosage: 1/4 TABLET, QID
     Route: 048
     Dates: start: 20100426, end: 20100514
  2. KETOSTERIL [Suspect]
     Indication: PRODUCT USED FOR UNKNOWN INDICATION
     Dosage: 1 TABLET
     Route: 065
     Dates: start: 20100412, end: 20100514
  3. ALFACALCIDOL [Concomitant]
     Indication: PRODUCT USED FOR UNKNOWN INDICATION
     Dosage: 4 DROPS
     Route: 065
     Dates: start: 20091001
  4. L-CARNITINE [Concomitant]
     Indication: PRODUCT USED FOR UNKNOWN INDICATION
     Dosage: 8 DROPS, TID
     Route: 065
     Dates: start: 20091001
  5. MALTOFER [Concomitant]
     Indication: PRODUCT USED FOR UNKNOWN INDICATION
     Dosage: 7 DROPS
     Route: 065
     Dates: start: 20091001
  6. RECORMON [Concomitant]
     Indication: ANAEMIA
     Dosage: UNK
     Route: 065
     Dates: end: 20100614
  7. ARANESP [Concomitant]
     Indication: ANAEMIA
     Dosage: 20 MCG, 1X/W
     Route: 065
     Dates: start: 20100614

REACTIONS (13)
  - ALKALOSIS [None]
  - ANAEMIA [None]
  - ASTHENIA [None]
  - DRUG INTERACTION [None]
  - HYPOCALCAEMIA [None]
  - HYPOKALAEMIA [None]
  - LARYNGOSPASM [None]
  - METABOLIC ACIDOSIS [None]
  - RENAL IMPAIRMENT [None]
  - SOMNOLENCE [None]
  - TETANY [None]
  - VOMITING [None]
  - WEIGHT GAIN POOR [None]
